FAERS Safety Report 6932532-6 (Version None)
Quarter: 2010Q3

REPORT INFORMATION
  Report Type: 
  Country: None (occurrence: None)
  Receive Date: 20100819
  Receipt Date: 20100810
  Transmission Date: 20110219
  Serious: Yes (Death, Other)
  Sender: FDA-Public Use
  Company Number: US-PFIZER INC-2010097795

PATIENT
  Sex: Male

DRUGS (1)
  1. REVATIO [Suspect]

REACTIONS (1)
  - DEATH [None]
